FAERS Safety Report 9574765 (Version 1)
Quarter: 2013Q4

REPORT INFORMATION
  Report Type: Spontaneous
  Country: AU (occurrence: AU)
  Receive Date: 20131001
  Receipt Date: 20131001
  Transmission Date: 20140711
  Serious: Yes (Other)
  Sender: FDA-Public Use
  Company Number: PHHY2013AU109198

PATIENT
  Age: 83 Year
  Sex: Female

DRUGS (4)
  1. ZOMETA [Suspect]
     Dosage: UNK UKN, UNK
  2. THYROXINE SODIUM [Concomitant]
     Dosage: UNK UKN, UNK
  3. OSTELIN [Concomitant]
     Dosage: UNK UKN, UNK
  4. CALCIUM VIT D [Concomitant]
     Dosage: UNK UKN, UNK

REACTIONS (4)
  - Hypoaesthesia [Unknown]
  - Paraesthesia [Unknown]
  - Tetany [Unknown]
  - Hypocalcaemia [Unknown]
